FAERS Safety Report 4359944-1 (Version None)
Quarter: 2004Q2

REPORT INFORMATION
  Report Type: 
  Country: None (occurrence: None)
  Receive Date: 20040512
  Receipt Date: 20040430
  Transmission Date: 20050107
  Serious: Yes (Hospitalization, Disabling)
  Sender: FDA-Public Use
  Company Number: 2004US000506

PATIENT
  Age: 45 Year
  Sex: Male

DRUGS (3)
  1. PROTOPIC [Suspect]
     Indication: BLEPHARITIS
     Dosage: TOPICAL
     Route: 061
     Dates: start: 20021201
  2. PROTOPIC [Suspect]
     Indication: DERMATITIS ATOPIC
     Dosage: TOPICAL
     Route: 061
     Dates: start: 20021201
  3. TRIAMCINOLONE [Concomitant]

REACTIONS (3)
  - BLINDNESS [None]
  - CELLULITIS ORBITAL [None]
  - EYE ABSCESS [None]
